FAERS Safety Report 5005885-6 (Version None)
Quarter: 2006Q2

REPORT INFORMATION
  Report Type: 
  Country: None (occurrence: None)
  Receive Date: 20060517
  Receipt Date: 20060517
  Transmission Date: 20061013
  Serious: Yes (Hospitalization)
  Sender: FDA-Public Use
  Company Number: None

PATIENT
  Age: 69 Year
  Sex: Male

DRUGS (6)
  1. DICLOFENAC POTASSIUM [Suspect]
     Indication: PAIN
     Dosage: 50 MG BID
     Dates: start: 20050901
  2. CA/VIT D [Concomitant]
  3. FOSINOPRIL SODIUM [Concomitant]
  4. OMEPRAZOLE [Concomitant]
  5. TERBINAFINE HCL [Concomitant]
  6. TEMAZEPAM [Concomitant]

REACTIONS (1)
  - PEPTIC ULCER [None]
